FAERS Safety Report 4963133-7 (Version None)
Quarter: 2006Q2

REPORT INFORMATION
  Report Type: 
  Country: None (occurrence: None)
  Receive Date: 20060405
  Receipt Date: 20060328
  Transmission Date: 20061013
  Serious: Yes (Hospitalization)
  Sender: FDA-Public Use
  Company Number: FR-ROCHE-442313

PATIENT
  Age: 82 Year
  Sex: Female

DRUGS (7)
  1. LOXEN LP 50 [Suspect]
     Indication: DRUG USE FOR UNKNOWN INDICATION
     Route: 048
     Dates: end: 20060215
  2. ASPEGIC 1000 [Suspect]
     Indication: DRUG USE FOR UNKNOWN INDICATION
     Route: 048
     Dates: end: 20060215
  3. THERALENE [Suspect]
     Indication: DRUG USE FOR UNKNOWN INDICATION
     Route: 048
     Dates: end: 20060215
  4. BUSPAR [Suspect]
     Indication: DRUG USE FOR UNKNOWN INDICATION
     Route: 048
     Dates: start: 20051115, end: 20060215
  5. AZOPT [Suspect]
     Indication: DRUG USE FOR UNKNOWN INDICATION
     Dosage: EYE DROP.
     Route: 047
  6. XALACOM [Suspect]
     Indication: DRUG USE FOR UNKNOWN INDICATION
     Dosage: EYE DROP.
     Route: 047
  7. ALPHAGAN [Suspect]
     Indication: DRUG USE FOR UNKNOWN INDICATION
     Dosage: EYE DROP.
     Route: 047

REACTIONS (2)
  - AGRANULOCYTOSIS [None]
  - PYREXIA [None]
